FAERS Safety Report 5013714-X (Version None)
Quarter: 2006Q2

REPORT INFORMATION
  Report Type: 
  Country: None (occurrence: None)
  Receive Date: 20060530
  Receipt Date: 20060523
  Transmission Date: 20061013
  Serious: Yes (Life-Threatening, Hospitalization, Other)
  Sender: FDA-Public Use
  Company Number: 200612863BWH

PATIENT
  Age: 57 Year
  Sex: Male

DRUGS (22)
  1. BC POWDER [Suspect]
     Indication: PAIN
     Route: 048
     Dates: start: 20060110
  2. INVESTIGATIONAL DRUG [Suspect]
     Dosage: 400MG PER DAY
     Route: 048
     Dates: start: 20050212, end: 20051125
  3. CEFOTETAN [Concomitant]
     Route: 042
     Dates: start: 20060502, end: 20060503
  4. MORPHINE [Concomitant]
     Indication: PAIN
     Route: 042
     Dates: start: 20060430
  5. HYDROMORPHONE HCL [Concomitant]
     Indication: PAIN
     Route: 042
     Dates: start: 20060501, end: 20060501
  6. THIAMINE [Concomitant]
     Indication: ILL-DEFINED DISORDER
     Route: 042
     Dates: start: 20060501, end: 20060502
  7. FOLIC ACID [Concomitant]
     Indication: ILL-DEFINED DISORDER
     Route: 042
     Dates: start: 20060501, end: 20060502
  8. MULTIVITAMIN [Concomitant]
     Indication: ILL-DEFINED DISORDER
     Route: 042
     Dates: start: 20060501
  9. MAGNESIUM SULFATE [Concomitant]
     Indication: ILL-DEFINED DISORDER
     Route: 042
     Dates: start: 20060501
  10. CELEXA [Concomitant]
     Indication: DEPRESSION
     Route: 048
     Dates: start: 20000618
  11. PRILOSEC [Concomitant]
     Indication: GASTRITIS
     Route: 048
     Dates: start: 20051104
  12. COMBIVENT [Concomitant]
     Indication: CHRONIC OBSTRUCTIVE PULMONARY DISEASE
     Route: 055
  13. AMOXICILLIN [Concomitant]
     Indication: HELICOBACTER INFECTION
     Route: 048
     Dates: start: 20060430, end: 20060430
  14. AMOXICILLIN [Concomitant]
     Route: 042
     Dates: start: 20060501
  15. CLARITHROMYCIN [Concomitant]
     Indication: HELICOBACTER INFECTION
     Route: 048
     Dates: start: 20060430, end: 20060430
  16. CLARITHROMYCIN [Concomitant]
     Route: 042
     Dates: start: 20060501
  17. PHENOBARBITAL [Concomitant]
     Indication: ALCOHOL WITHDRAWAL SYNDROME
     Route: 042
     Dates: start: 20060502
  18. TYLENOL (GELTAB) [Concomitant]
     Indication: PAIN
     Route: 048
     Dates: start: 20060308
  19. NASALIDE [Concomitant]
     Indication: SEASONAL ALLERGY
     Route: 045
     Dates: start: 20060316
  20. AUGMENTIN '125' [Concomitant]
     Indication: BRONCHITIS ACUTE
     Route: 048
     Dates: start: 20060406, end: 20060412
  21. PREDNISONE [Concomitant]
     Indication: BRONCHITIS ACUTE
     Route: 048
     Dates: start: 20060406, end: 20060412
  22. BUDESONIDE [Concomitant]
     Indication: CHRONIC OBSTRUCTIVE PULMONARY DISEASE
     Route: 055
     Dates: start: 20060502, end: 20060504

REACTIONS (2)
  - CEREBROVASCULAR ACCIDENT [None]
  - DUODENAL ULCER PERFORATION [None]
